FAERS Safety Report 5223755-5 (Version None)
Quarter: 2007Q1

REPORT INFORMATION
  Report Type: 
  Country: None (occurrence: None)
  Receive Date: 20070125
  Receipt Date: 20070115
  Transmission Date: 20070707
  Serious: Yes (Hospitalization, Other)
  Sender: FDA-Public Use
  Company Number: HQWYE440215JAN07

PATIENT
  Age: 78 Year
  Sex: Female

DRUGS (3)
  1. PANTOPRAZOLE SODIUM [Suspect]
     Indication: ABDOMINAL DISTENSION
     Dosage: 1 DOSAGE FORM 1X PER 1 DAY ORAL
     Route: 048
     Dates: start: 20061029, end: 20061029
  2. BLOPRESS (CANDESARTAN CILEXETIL) [Concomitant]
  3. CYMBICORT (BUDESONIDE/FORMOTEROL FUMARATE) [Concomitant]

REACTIONS (4)
  - HYPERSENSITIVITY [None]
  - OROPHARYNGEAL SWELLING [None]
  - SWOLLEN TONGUE [None]
  - WHEEZING [None]
